FAERS Safety Report 4342737-9 (Version None)
Quarter: 2004Q2

REPORT INFORMATION
  Report Type: 
  Country: None (occurrence: None)
  Receive Date: 20040409
  Receipt Date: 20030325
  Transmission Date: 20050107
  Serious: Yes (Hospitalization)
  Sender: FDA-Public Use
  Company Number: 03P-163-0214844-00

PATIENT
  Age: 49 Year
  Sex: Female

DRUGS (12)
  1. DEPAKOTE [Suspect]
     Indication: BIPOLAR I DISORDER
     Dosage: 500 MG, 4 IN 1 D, PER ORAL
     Route: 048
     Dates: end: 20020901
  2. DEPAKOTE ER [Suspect]
     Indication: BIPOLAR I DISORDER
     Dosage: PER ORAL
     Route: 048
     Dates: start: 20030212, end: 20030317
  3. HYDROXYZINE [Concomitant]
  4. LOVASTATIN [Concomitant]
  5. ASPIRIN [Concomitant]
  6. GLYBURIDE [Concomitant]
  7. GEMFIBROZIL [Concomitant]
  8. DEPAKINE SYRUP (DEPAKOTE) (DIVALPROEX SODIUM) (DIVALPROEX SODIUM) [Suspect]
     Indication: BIPOLAR I DISORDER
     Dosage: 1500 MG, 2 IN 1 D, PER ORAL
     Route: 048
     Dates: start: 20030318
  9. ZIPRASIDONE HYDROCHLORIDE [Suspect]
     Dosage: 60 MG, 2 IN 1 D
     Dates: start: 20030301
  10. LISINOPRIL [Concomitant]
  11. ZINC [Concomitant]
  12. LEVOTHYROXINE SODIUM [Concomitant]

REACTIONS (2)
  - DRUG LEVEL DECREASED [None]
  - MANIA [None]
